FAERS Safety Report 7137418-2 (Version None)
Quarter: 2010Q4

REPORT INFORMATION
  Report Type: 
  Country: None (occurrence: None)
  Receive Date: 20101119
  Receipt Date: 20091018
  Transmission Date: 20110411
  Serious: Yes (Death)
  Sender: FDA-Public Use
  Company Number: DSA_44254_2010

PATIENT
  Sex: Female

DRUGS (3)
  1. XENAZINE [Suspect]
     Indication: HUNTINGTON'S DISEASE
     Dosage: (12.5 MG QD ORAL), (12.5 MG BID ORAL), (12.5 MG TID ORAL)
     Route: 048
     Dates: start: 20090901, end: 20090101
  2. XENAZINE [Suspect]
     Indication: HUNTINGTON'S DISEASE
     Dosage: (12.5 MG QD ORAL), (12.5 MG BID ORAL), (12.5 MG TID ORAL)
     Route: 048
     Dates: start: 20090915, end: 20090901
  3. XENAZINE [Suspect]
     Indication: HUNTINGTON'S DISEASE
     Dosage: (12.5 MG QD ORAL), (12.5 MG BID ORAL), (12.5 MG TID ORAL)
     Route: 048
     Dates: start: 20090101

REACTIONS (1)
  - DEATH [None]
